FAERS Safety Report 7270254-5 (Version None)
Quarter: 2011Q1

REPORT INFORMATION
  Report Type: 
  Country: None (occurrence: None)
  Receive Date: 20110125
  Receipt Date: 20110125
  Transmission Date: 20110831
  Serious: Yes (Life-Threatening, Hospitalization)
  Sender: FDA-Public Use
  Company Number: None

PATIENT
  Age: 81 Year
  Sex: Female
  Weight: 77.1115 kg

DRUGS (1)
  1. LYRICA [Suspect]
     Indication: PROCEDURAL PAIN
     Dosage: 1 CAPSULE TWICE A DAY
     Dates: start: 20110106, end: 20110107

REACTIONS (4)
  - HEART RATE INCREASED [None]
  - APPARENT DEATH [None]
  - SOMNOLENCE [None]
  - LOSS OF CONSCIOUSNESS [None]
